FAERS Safety Report 25874530 (Version 1)
Quarter: 2025Q4

REPORT INFORMATION
  Report Type: Spontaneous
  Country: US (occurrence: US)
  Receive Date: 20251002
  Receipt Date: 20251002
  Transmission Date: 20260119
  Serious: No
  Sender: PFIZER
  Company Number: US-PFIZER INC-202500193802

PATIENT

DRUGS (1)
  1. ZAVZPRET [Suspect]
     Active Substance: ZAVEGEPANT HYDROCHLORIDE
     Indication: Migraine
     Dosage: 10 MG, 1X/DAY (ONCE EVERY 24H)

REACTIONS (3)
  - Dysgeusia [Unknown]
  - Drug ineffective [Unknown]
  - Off label use [Unknown]
